FAERS Safety Report 7671212-9 (Version None)
Quarter: 2011Q3

REPORT INFORMATION
  Report Type: 
  Country: None (occurrence: None)
  Receive Date: 20110809
  Receipt Date: 20100317
  Transmission Date: 20111222
  Serious: No
  Sender: FDA-Public Use
  Company Number: US-BAYER-201017672NA

PATIENT
  Age: 22 Year
  Sex: Female

DRUGS (2)
  1. MIRENA [Suspect]
     Indication: CONTRACEPTION
     Dosage: 20 ?G, CONT
     Route: 015
     Dates: start: 20100208
  2. MIRENA [Suspect]
     Indication: WEIGHT CONTROL

REACTIONS (2)
  - MEDICAL DEVICE COMPLICATION [None]
  - PELVIC PAIN [None]
